FAERS Safety Report 7232854-8 (Version None)
Quarter: 2011Q1

REPORT INFORMATION
  Report Type: 
  Country: None (occurrence: None)
  Receive Date: 20110119
  Receipt Date: 20110106
  Transmission Date: 20110831
  Serious: No
  Sender: FDA-Public Use
  Company Number: US-B.I. PHARMACEUTICALS,INC./RIDGEFIELD-2011-BP-00713BP

PATIENT
  Sex: Male

DRUGS (7)
  1. PRADAXA [Suspect]
     Indication: ATRIAL FIBRILLATION
     Dosage: 300 MG
     Route: 048
     Dates: start: 20101201
  2. ATENOLOL [Concomitant]
     Indication: CARDIAC DISORDER
  3. SINGULAIR [Concomitant]
     Indication: ASTHMA
  4. NAPROXEN [Concomitant]
     Indication: ARTHRITIS
  5. CRESTOR [Concomitant]
     Indication: BLOOD CHOLESTEROL INCREASED
  6. MEDICATION NOT FURTHER SPECIFIED [Concomitant]
     Indication: HYPERTENSION
  7. MULTAQ [Concomitant]
     Indication: ATRIAL FIBRILLATION

REACTIONS (1)
  - FOREIGN BODY [None]
